FAERS Safety Report 13253018 (Version 1)
Quarter: 2017Q1

REPORT INFORMATION
  Report Type: Other
  Country: GR (occurrence: GR)
  Receive Date: 20170220
  Receipt Date: 20170220
  Transmission Date: 20170428
  Serious: Yes (Other)
  Sender: FDA-Public Use
  Company Number: GR-CELLTRION INC.-2017GR001856

PATIENT

DRUGS (3)
  1. BUDENOFALK [Concomitant]
     Active Substance: BUDESONIDE
     Dosage: 9 MG 1X/DAY
     Dates: start: 201607
  2. INFLECTRA [Suspect]
     Active Substance: INFLIXIMAB-DYYB
     Indication: CROHN^S DISEASE
     Dosage: 5 MG/KG, AT 0, 2 AND 6 WEEKS (3 DOSES TOTAL)
     Route: 042
     Dates: start: 20160906, end: 20161021
  3. AZATHIOPRINE. [Concomitant]
     Active Substance: AZATHIOPRINE
     Dosage: 150 MG, 1X/DAY

REACTIONS (3)
  - Cerebral infarction [Unknown]
  - Superior sagittal sinus thrombosis [Unknown]
  - Myelitis [Unknown]

NARRATIVE: CASE EVENT DATE: 20161215
